FAERS Safety Report 16474282 (Version 4)
Quarter: 2020Q2

REPORT INFORMATION
  Report Type: Spontaneous
  Country: US (occurrence: US)
  Receive Date: 20190625
  Receipt Date: 20200519
  Transmission Date: 20200713
  Serious: Yes (Hospitalization, Other)
  Sender: FDA-Public Use
  Company Number: US-PFIZER INC-2019270124

PATIENT
  Age: 88 Year
  Sex: Female
  Weight: 63.04 kg

DRUGS (1)
  1. IBRANCE [Suspect]
     Active Substance: PALBOCICLIB
     Indication: BREAST CANCER FEMALE
     Dosage: 125 MG, UNK

REACTIONS (3)
  - Confusional state [Unknown]
  - Small intestinal obstruction [Unknown]
  - Memory impairment [Unknown]

NARRATIVE: CASE EVENT DATE: 20190808
